FAERS Safety Report 23763310 (Version 1)
Quarter: 2024Q2

REPORT INFORMATION
  Report Type: Spontaneous
  Country: US (occurrence: None)
  Receive Date: 20240419
  Receipt Date: 20240419
  Transmission Date: 20240716
  Serious: Yes (Hospitalization)
  Sender: FDA-Public Use
  Company Number: None

PATIENT
  Sex: Male

DRUGS (2)
  1. LENALIDOMIDE [Suspect]
     Active Substance: LENALIDOMIDE
     Indication: Plasma cell myeloma
     Dosage: 5MG 1 TIME A DAY BY MOUTH
     Route: 048
     Dates: start: 202310
  2. CEFDINIR [Concomitant]
     Active Substance: CEFDINIR

REACTIONS (1)
  - Pneumonia [None]
